FAERS Safety Report 10792326 (Version 1)
Quarter: 2015Q1

REPORT INFORMATION
  Report Type: Spontaneous
  Country: US (occurrence: US)
  Receive Date: 20150213
  Receipt Date: 20150213
  Transmission Date: 20150721
  Serious: Yes (Other)
  Sender: FDA-Public Use
  Company Number: US-JNJFOC-20150206318

PATIENT
  Age: 79 Year
  Sex: Male

DRUGS (1)
  1. INVOKANA [Suspect]
     Active Substance: CANAGLIFLOZIN
     Indication: TYPE 2 DIABETES MELLITUS
     Dosage: ALTERNATING BETWEEN 100 MG AND 300 MG
     Route: 048
     Dates: end: 2013

REACTIONS (3)
  - Pulmonary embolism [Unknown]
  - Upper-airway cough syndrome [Recovered/Resolved]
  - Laryngitis [Recovered/Resolved]
